FAERS Safety Report 10594502 (Version 3)
Quarter: 2014Q4

REPORT INFORMATION
  Report Type: Spontaneous
  Country: US (occurrence: US)
  Receive Date: 20141120
  Receipt Date: 20141212
  Transmission Date: 20150529
  Serious: Yes (Death, Other)
  Sender: FDA-Public Use
  Company Number: US-009507513-1411USA008422

PATIENT
  Sex: Male
  Weight: 65.76 kg

DRUGS (3)
  1. TAXOTERE [Concomitant]
     Active Substance: DOCETAXEL
     Dosage: UNK
  2. CARBOPLATIN. [Concomitant]
     Active Substance: CARBOPLATIN
     Dosage: UNK
  3. EMEND [Suspect]
     Active Substance: APREPITANT
     Dosage: EMEND CAPSULE 125 MG (1)-80 MG (1)-80 MG (1) 1 UNIT OF USE BLIST PACK
     Route: 048
     Dates: start: 201403, end: 201406

REACTIONS (2)
  - Metastases to bone [Fatal]
  - Bladder cancer [Fatal]
